FAERS Safety Report 7610811-7 (Version None)
Quarter: 2011Q3

REPORT INFORMATION
  Report Type: 
  Country: None (occurrence: None)
  Receive Date: 20110715
  Receipt Date: 20110704
  Transmission Date: 20111222
  Serious: Yes (Disabling, Other)
  Sender: FDA-Public Use
  Company Number: PHHY2011DE56097

PATIENT
  Sex: Male
  Weight: 130 kg

DRUGS (14)
  1. DIOVAN [Suspect]
     Dosage: 320 MG,DAILY
     Route: 048
     Dates: start: 20090319, end: 20110110
  2. TORSEMIDE [Concomitant]
     Indication: HYPERTENSION
     Dosage: 20 MG, DAILY
     Route: 048
     Dates: start: 20070420
  3. ALISKIREN [Suspect]
     Indication: HYPERTENSION
     Dosage: 300 MG DAILY
     Route: 048
     Dates: start: 20071114
  4. NEBIVOLOL HCL [Concomitant]
     Indication: HYPERTENSION
     Dosage: 5 MG, DAILY
     Route: 048
     Dates: start: 20070111
  5. DOXAZOSIN MESYLATE [Concomitant]
     Indication: HYPERTENSION
     Dosage: 8 MG, DAILY
     Route: 048
     Dates: start: 20070424
  6. SIMVASTATIN [Concomitant]
     Indication: HYPERLIPIDAEMIA
     Dosage: 40 MG, DAILY
     Route: 048
     Dates: start: 20081106
  7. DIOVAN [Suspect]
     Indication: HYPERTENSION
     Dosage: 160 MG, DAILY
     Route: 048
     Dates: start: 20070420, end: 20090319
  8. METFORMIN HCL [Concomitant]
     Indication: DIABETES MELLITUS
     Dosage: 1700 MG, DAILY
     Route: 048
     Dates: start: 20070101
  9. DIOVAN HCT [Suspect]
     Indication: HYPERTENSION
     Dosage: 1 DF, UNK
     Route: 048
     Dates: start: 20110110
  10. CARMEN [Concomitant]
     Indication: HYPERTENSION
     Dosage: 40 MG, DAILY
     Route: 048
     Dates: start: 20070420
  11. INSULIN HUMAN [Concomitant]
     Indication: DIABETES MELLITUS
     Dosage: 70 IU, DAILY
     Route: 058
     Dates: start: 19990111
  12. DIURETICS [Concomitant]
     Dosage: UNK UKN, UNK
     Dates: start: 20110110
  13. ASPIRIN [Concomitant]
     Indication: PERIPHERAL ARTERIAL OCCLUSIVE DISEASE
     Dosage: 100 MG, DAILY
     Route: 048
     Dates: start: 19990304
  14. OTHER ANTIHYPERTENSIVES [Concomitant]
     Dosage: UNK UKN, UNK

REACTIONS (11)
  - ELECTROCARDIOGRAM QRS COMPLEX PROLONGED [None]
  - HYPERTENSION [None]
  - C-REACTIVE PROTEIN INCREASED [None]
  - CREATININE URINE INCREASED [None]
  - MYELODYSPLASTIC SYNDROME [None]
  - ANGINA PECTORIS [None]
  - DYSPNOEA [None]
  - LEFT VENTRICULAR HYPERTROPHY [None]
  - BLOOD PRESSURE DIASTOLIC DECREASED [None]
  - IMPAIRED WORK ABILITY [None]
  - REFRACTORY ANAEMIA [None]
